FAERS Safety Report 10489409 (Version 2)
Quarter: 2014Q4

REPORT INFORMATION
  Report Type: Spontaneous
  Country: NL (occurrence: None)
  Receive Date: 20140930
  Receipt Date: 20141029
  Transmission Date: 20150528
  Serious: Yes (Hospitalization)
  Sender: FDA-Public Use
  Company Number: NL-LHC-2014082

PATIENT
  Sex: Female

DRUGS (1)
  1. CONOXIA, INHALATIEGAS 100 % ( OXYGEN) (GAS FOR INHALATION) (VERUM) [Suspect]
     Active Substance: OXYGEN
     Indication: PRODUCT USED FOR UNKNOWN INDICATION
     Dosage: INHALATION.
     Route: 055

REACTIONS (2)
  - Injury [None]
  - Thermal burn [None]

NARRATIVE: CASE EVENT DATE: 20140916
